FAERS Safety Report 8604676-4 (Version None)
Quarter: 2012Q3

REPORT INFORMATION
  Report Type: 
  Country: None (occurrence: None)
  Receive Date: 20120807
  Receipt Date: 20120726
  Transmission Date: 20120928
  Serious: Yes (Hospitalization)
  Sender: FDA-Public Use
  Company Number: 2012070127

PATIENT
  Sex: Male

DRUGS (1)
  1. PROCTOFOAM HC (HYDROCORTISONE ACETATE, PRAMOXINE 1%) [Suspect]
     Dosage: (1 IN 1 D), TOPICAL
     Route: 061
     Dates: start: 20120301

REACTIONS (1)
  - DEHYDRATION [None]
